FAERS Safety Report 13817180 (Version 11)
Quarter: 2022Q3

REPORT INFORMATION
  Report Type: Report from Study
  Country: AR (occurrence: AR)
  Receive Date: 20170731
  Receipt Date: 20220729
  Transmission Date: 20221026
  Serious: Yes (Hospitalization)
  Sender: FDA-Public Use
  Company Number: PHHY2017AR110414

PATIENT
  Age: 55 Year
  Sex: Male

DRUGS (1)
  1. COSENTYX [Suspect]
     Active Substance: SECUKINUMAB
     Indication: Psoriasis
     Dosage: 300 MG, QMO
     Route: 058
     Dates: start: 20170412

REACTIONS (8)
  - Mental disorder [Recovering/Resolving]
  - Malaise [Recovering/Resolving]
  - Condition aggravated [Recovered/Resolved]
  - Dermatitis allergic [Recovered/Resolved]
  - Pruritus [Recovered/Resolved]
  - Mood altered [Unknown]
  - Psoriasis [Unknown]
  - Erythema [Unknown]

NARRATIVE: CASE EVENT DATE: 20200301
